FAERS Safety Report 5824246-0 (Version None)
Quarter: 2008Q3

REPORT INFORMATION
  Report Type: 
  Country: None (occurrence: None)
  Receive Date: 20080728
  Receipt Date: 20080721
  Transmission Date: 20090109
  Serious: Yes (Hospitalization)
  Sender: FDA-Public Use
  Company Number: US-BAYER-200810967BCC

PATIENT
  Age: 72 Year
  Sex: Male

DRUGS (4)
  1. ASPIRIN [Suspect]
     Indication: NASOPHARYNGITIS
     Dosage: TOTAL DAILY DOSE: 500 MG  UNIT DOSE: 500 MG
     Route: 048
     Dates: start: 20080101, end: 20080101
  2. ACTIFED [Suspect]
     Indication: NASOPHARYNGITIS
     Route: 048
     Dates: start: 20070101, end: 20080101
  3. ARCOXIA [Suspect]
     Indication: OSTEOARTHRITIS
     Route: 048
     Dates: start: 20071230, end: 20080101
  4. MAALOX [Concomitant]
     Route: 048
     Dates: start: 20080101, end: 20080101

REACTIONS (4)
  - ANAEMIA [None]
  - DUODENAL ULCER [None]
  - GASTRITIS EROSIVE [None]
  - MELAENA [None]
